FAERS Safety Report 9838758 (Version 1)
Quarter: 2014Q1

REPORT INFORMATION
  Report Type: Spontaneous
  Country: FR (occurrence: FR)
  Receive Date: 20140123
  Receipt Date: 20140123
  Transmission Date: 20141002
  Serious: Yes (Hospitalization)
  Sender: FDA-Public Use
  Company Number: FR-ABBVIE-14P-056-1192228-00

PATIENT
  Age: 22 Year
  Sex: Female

DRUGS (4)
  1. ENANTONE LP [Suspect]
     Indication: IN VITRO FERTILISATION
     Route: 050
     Dates: start: 201302, end: 201302
  2. GONAL-F [Suspect]
     Indication: IN VITRO FERTILISATION
     Dosage: 900IU/1.5ML OR 66 1/4G/1.5ML
     Route: 030
     Dates: start: 20130215, end: 20130301
  3. LUVERIS [Suspect]
     Indication: IN VITRO FERTILISATION
     Dosage: 1 DF
     Route: 058
     Dates: start: 20130226, end: 20130301
  4. OVITRELLE [Suspect]
     Indication: IN VITRO FERTILISATION
     Dosage: 1 DF
     Route: 058
     Dates: start: 20130302

REACTIONS (3)
  - Ovarian hyperstimulation syndrome [Unknown]
  - Ascites [Unknown]
  - Haematocrit increased [Unknown]
